FAERS Safety Report 4432978-4 (Version None)
Quarter: 2004Q3

REPORT INFORMATION
  Report Type: 
  Country: None (occurrence: None)
  Receive Date: 20040823
  Receipt Date: 20040812
  Transmission Date: 20050211
  Serious: Yes (Other)
  Sender: FDA-Public Use
  Company Number: 2004228424US

PATIENT
  Sex: Female

DRUGS (1)
  1. CELEBREX [Suspect]
     Dosage: 200 MG, BID, ORAL
     Route: 048

REACTIONS (2)
  - BILE DUCT STONE [None]
  - HEPATOCELLULAR DAMAGE [None]
